FAERS Safety Report 19237423 (Version 1)
Quarter: 2021Q2

REPORT INFORMATION
  Report Type: Spontaneous
  Country: US (occurrence: US)
  Receive Date: 20210510
  Receipt Date: 20210510
  Transmission Date: 20210717
  Serious: Yes (Other)
  Sender: FDA-Public Use
  Company Number: None

PATIENT
  Age: 57 Year
  Sex: Female
  Weight: 95.3 kg

DRUGS (16)
  1. PHENTERMINE. [Concomitant]
     Active Substance: PHENTERMINE
  2. ASPIRIN. [Concomitant]
     Active Substance: ASPIRIN
  3. LEVOCETIRIZINE [Concomitant]
     Active Substance: LEVOCETIRIZINE
  4. FUROSEMIDE. [Concomitant]
     Active Substance: FUROSEMIDE
  5. MAGNESIUM OXIDE. [Concomitant]
     Active Substance: MAGNESIUM OXIDE
  6. MONTELUKAST [Concomitant]
     Active Substance: MONTELUKAST SODIUM
  7. BAMLANIVIMAB 700 MG, ETESEVIMAB 1,400 MG IN 0.9% SODIUM CHLORIDE IVPB [Suspect]
     Active Substance: BAMLANIVIMAB\ETESEVIMAB
     Indication: COVID-19
     Dates: start: 20210430, end: 20210430
  8. ZINC. [Concomitant]
     Active Substance: ZINC
  9. GABAPENTIN. [Concomitant]
     Active Substance: GABAPENTIN
  10. POTASSIUM CHLORIDE. [Concomitant]
     Active Substance: POTASSIUM CHLORIDE
  11. ATORVASTATIN [Concomitant]
     Active Substance: ATORVASTATIN
  12. DESVENLAFAXINE. [Concomitant]
     Active Substance: DESVENLAFAXINE
  13. MULTIVITAMIN [Concomitant]
     Active Substance: VITAMINS
  14. VITAMIN D3 [Concomitant]
     Active Substance: CHOLECALCIFEROL
  15. COLACE [Concomitant]
     Active Substance: DOCUSATE SODIUM
  16. OMEPRAZOLE. [Concomitant]
     Active Substance: OMEPRAZOLE

REACTIONS (4)
  - Cough [None]
  - Dyspnoea exertional [None]
  - Chest pain [None]
  - Pain [None]

NARRATIVE: CASE EVENT DATE: 20210430
